FAERS Safety Report 6978635-1 (Version None)
Quarter: 2010Q3

REPORT INFORMATION
  Report Type: 
  Country: None (occurrence: None)
  Receive Date: 20100913
  Receipt Date: 20100903
  Transmission Date: 20110219
  Serious: Yes (Hospitalization)
  Sender: FDA-Public Use
  Company Number: A0802618A

PATIENT
  Age: 60 Year
  Sex: Female
  Weight: 121.8 kg

DRUGS (3)
  1. AVANDIA [Suspect]
     Indication: DIABETES MELLITUS
     Dosage: 8MG TWICE PER DAY
     Route: 048
     Dates: start: 20010501, end: 20070101
  2. LIPITOR [Concomitant]
  3. TRIAMTERENE [Concomitant]

REACTIONS (4)
  - CARDIAC FAILURE CONGESTIVE [None]
  - CORONARY ARTERY OCCLUSION [None]
  - POSTOPERATIVE WOUND INFECTION [None]
  - RENAL FAILURE [None]
